FAERS Safety Report 13040593 (Version 1)
Quarter: 2016Q4

REPORT INFORMATION
  Report Type: Spontaneous
  Country: US (occurrence: US)
  Receive Date: 20161219
  Receipt Date: 20161219
  Transmission Date: 20170207
  Serious: Yes (Hospitalization)
  Sender: FDA-Public Use
  Company Number: US-SA-2016SA123643

PATIENT
  Age: 66 Year
  Sex: Female
  Weight: 98.5 kg

DRUGS (5)
  1. NOVORAPID [Suspect]
     Active Substance: INSULIN ASPART
     Indication: TYPE 2 DIABETES MELLITUS
     Dosage: DOSE:63 UNIT(S)
     Route: 058
     Dates: start: 20141006, end: 20151030
  2. PLAVIX [Suspect]
     Active Substance: CLOPIDOGREL BISULFATE
     Route: 065
     Dates: end: 20160502
  3. ASPIRIN. [Suspect]
     Active Substance: ASPIRIN
     Route: 065
     Dates: end: 20160506
  4. BLINDED THERAPY [Suspect]
     Active Substance: INVESTIGATIONAL PRODUCT
     Indication: TYPE 2 DIABETES MELLITUS
     Route: 065
     Dates: start: 20141006, end: 20151030
  5. COUMADIN [Suspect]
     Active Substance: WARFARIN SODIUM
     Route: 065
     Dates: end: 20150502

REACTIONS (1)
  - Lower gastrointestinal haemorrhage [Recovered/Resolved]

NARRATIVE: CASE EVENT DATE: 20160501
